FAERS Safety Report 9441534 (Version 1)
Quarter: 2013Q3

REPORT INFORMATION
  Report Type: Spontaneous
  Country: US (occurrence: US)
  Receive Date: 20130805
  Receipt Date: 20130805
  Transmission Date: 20140515
  Serious: Yes (Hospitalization, Other)
  Sender: FDA-Public Use
  Company Number: US-UCBSA-069865

PATIENT
  Sex: Female

DRUGS (1)
  1. KEPPRA XR [Suspect]
     Indication: CONVULSION
     Dosage: DOSE STRENGTH: 500MG 2/DAILY BATCH NUMBER: 76545 EXPIRY DATE: 31-MAY-2015

REACTIONS (1)
  - Cervix carcinoma [Not Recovered/Not Resolved]
